FAERS Safety Report 23797463 (Version 2)
Quarter: 2025Q3

REPORT INFORMATION
  Report Type: Report from Study
  Country: CH (occurrence: CH)
  Receive Date: 20240430
  Receipt Date: 20250909
  Transmission Date: 20251020
  Serious: Yes (Death, Life-Threatening, Hospitalization)
  Sender: MIRUM PHARMACEUTICALS
  Company Number: CH-MIRUM PHARMACEUTICALS, INC.-CH-MIR-23-00587

PATIENT

DRUGS (6)
  1. MARALIXIBAT CHLORIDE [Suspect]
     Active Substance: MARALIXIBAT CHLORIDE
     Indication: Alagille syndrome
     Dosage: 860 MICROGRAM/KILOGRAM, BID
     Route: 048
     Dates: start: 20221222, end: 20231018
  2. MARALIXIBAT CHLORIDE [Suspect]
     Active Substance: MARALIXIBAT CHLORIDE
     Indication: Pruritus
     Dosage: 400 MICROGRAM/KILOGRAM, QD
     Route: 048
     Dates: start: 20211214, end: 20221222
  3. MARALIXIBAT CHLORIDE [Suspect]
     Active Substance: MARALIXIBAT CHLORIDE
     Dosage: 400 MICROGRAM/KILOGRAM, QD
     Route: 048
     Dates: start: 20211207
  4. MARALIXIBAT CHLORIDE [Suspect]
     Active Substance: MARALIXIBAT CHLORIDE
     Dosage: 200 MICROGRAM/KILOGRAM, QD
     Route: 048
     Dates: start: 20211129
  5. RIFAMPIN [Concomitant]
     Active Substance: RIFAMPIN
     Indication: Pruritus
     Dosage: 10 MILLIGRAM/KILOGRAM, BID
     Route: 065
     Dates: start: 20210901
  6. ASPIRIN [Concomitant]
     Active Substance: ASPIRIN
     Indication: Thrombocytosis
     Route: 065

REACTIONS (1)
  - Hepatocellular carcinoma [Fatal]

NARRATIVE: CASE EVENT DATE: 20230919
